FAERS Safety Report 6954488-2 (Version None)
Quarter: 2010Q3

REPORT INFORMATION
  Report Type: 
  Country: None (occurrence: None)
  Receive Date: 20100829
  Receipt Date: 20100721
  Transmission Date: 20110219
  Serious: No
  Sender: FDA-Public Use
  Company Number: US-ABBOTT-10P-163-0658775-00

PATIENT
  Sex: Male
  Weight: 136.2 kg

DRUGS (8)
  1. NIASPAN [Suspect]
     Indication: BLOOD CHOLESTEROL
     Dates: start: 20100601, end: 20100714
  2. LISINOPRIL [Concomitant]
     Indication: BLOOD PRESSURE
     Dosage: 20 MG AT NOON AND 40 MG AT BED TIME
  3. PRANDIN [Concomitant]
     Indication: DIABETES MELLITUS
  4. JANUMET [Concomitant]
     Indication: PRODUCT USED FOR UNKNOWN INDICATION
     Dosage: 50/1000
  5. RESULT [Concomitant]
     Indication: BONE PAIN
  6. FLOMAX [Concomitant]
     Indication: PROSTATIC DISORDER
  7. OMEPRAZOLE [Concomitant]
     Indication: GASTRIC DISORDER
  8. GABAPENTIN [Concomitant]
     Indication: PARAESTHESIA

REACTIONS (3)
  - HYPERHIDROSIS [None]
  - INCORRECT DOSE ADMINISTERED [None]
  - WRONG TECHNIQUE IN DRUG USAGE PROCESS [None]
